FAERS Safety Report 9408829 (Version 1)
Quarter: 2013Q3

REPORT INFORMATION
  Report Type: Spontaneous
  Country: US (occurrence: US)
  Receive Date: 20130719
  Receipt Date: 20130719
  Transmission Date: 20140515
  Serious: No
  Sender: FDA-Public Use
  Company Number: US-B.I. PHARMACEUTICALS,INC./RIDGEFIELD-2013-BI-20442BP

PATIENT
  Age: 73 Year
  Sex: Male
  Weight: 61 kg

DRUGS (2)
  1. SPIRIVA [Suspect]
     Indication: CHRONIC OBSTRUCTIVE PULMONARY DISEASE
     Dosage: 18 MCG
     Route: 055
     Dates: start: 201305
  2. ASMANEX [Concomitant]

REACTIONS (4)
  - Chest discomfort [Not Recovered/Not Resolved]
  - Nocturia [Not Recovered/Not Resolved]
  - Dysuria [Not Recovered/Not Resolved]
  - Throat tightness [Not Recovered/Not Resolved]
